FAERS Safety Report 23119243 (Version 1)
Quarter: 2023Q4

REPORT INFORMATION
  Report Type: Spontaneous
  Country: CH (occurrence: CH)
  Receive Date: 20231028
  Receipt Date: 20231028
  Transmission Date: 20240109
  Serious: Yes (Hospitalization)
  Sender: FDA-Public Use
  Company Number: None

PATIENT
  Age: 85 Year
  Sex: Female
  Weight: 65.2 kg

DRUGS (7)
  1. ESCITALOPRAM OXALATE [Interacting]
     Active Substance: ESCITALOPRAM OXALATE
     Indication: Product used for unknown indication
     Dosage: 5 MILLIGRAM DAILY; 5MG 1X/D IN THE MORNING
     Route: 065
     Dates: end: 20230811
  2. ESOMEPRAZOLE [Suspect]
     Active Substance: ESOMEPRAZOLE
     Indication: Product used for unknown indication
     Dosage: 20 MILLIGRAM DAILY;  20MG 1X/D
     Dates: end: 20230811
  3. ATENOLOL [Concomitant]
     Active Substance: ATENOLOL
     Indication: Product used for unknown indication
     Dates: end: 20230808
  4. ATACAND [Concomitant]
     Active Substance: CANDESARTAN CILEXETIL
     Indication: Hypertension
  5. LERCANIDIPINE [Concomitant]
     Active Substance: LERCANIDIPINE
     Indication: Product used for unknown indication
  6. VITAMIN D NOS [Concomitant]
     Active Substance: VITAMIN D NOS
     Indication: Product used for unknown indication
  7. RETINOL [Concomitant]
     Active Substance: RETINOL
     Indication: Eye disorder
     Route: 047

REACTIONS (6)
  - Confusional state [Recovered/Resolved]
  - Psychomotor retardation [Recovered/Resolved]
  - Hyponatraemia [Recovered/Resolved]
  - Hypoosmolar state [Recovered/Resolved]
  - Inappropriate antidiuretic hormone secretion [Unknown]
  - Drug interaction [Recovered/Resolved]

NARRATIVE: CASE EVENT DATE: 20230807
